FAERS Safety Report 5583625-X (Version None)
Quarter: 2008Q1

REPORT INFORMATION
  Report Type: 
  Country: None (occurrence: None)
  Receive Date: 20080107
  Receipt Date: 20071224
  Transmission Date: 20080703
  Serious: Yes (Death)
  Sender: FDA-Public Use
  Company Number: ES-GENENTECH-253865

PATIENT
  Age: 60 Year
  Sex: Female

DRUGS (7)
  1. MABTHERA [Suspect]
     Indication: B-CELL LYMPHOMA
     Dosage: 375 MG/M2, UNK
  2. FLUDARABINE PHOSPHATE [Suspect]
     Indication: B-CELL LYMPHOMA
     Dosage: 25 MG/M2, UNK
  3. CYCLOPHOSPHAMIDE [Suspect]
     Indication: B-CELL LYMPHOMA
     Dosage: 1000 MG/M2, UNK
  4. IDARUBICIN HCL [Concomitant]
     Indication: ACUTE MYELOID LEUKAEMIA
     Dosage: 12 MG/M2, UNK
  5. CYTARABINE [Concomitant]
     Indication: ACUTE MYELOID LEUKAEMIA
     Dosage: 2 G/M2, UNK
  6. ETOPOSIDE [Concomitant]
     Indication: ACUTE MYELOID LEUKAEMIA
     Dosage: 100 MG/M2, UNK
  7. THIOGUANINE [Concomitant]
     Indication: DRUG USE FOR UNKNOWN INDICATION

REACTIONS (2)
  - ACUTE MYELOID LEUKAEMIA [None]
  - DEATH [None]
